FAERS Safety Report 19027096 (Version 5)
Quarter: 2021Q2

REPORT INFORMATION
  Report Type: Report from Study
  Country: BR (occurrence: BR)
  Receive Date: 20210318
  Receipt Date: 20210619
  Transmission Date: 20210717
  Serious: Yes (Other)
  Sender: FDA-Public Use
  Company Number: BR-UCBSA-2021012430

PATIENT
  Age: 70 Year
  Sex: Male
  Weight: 100 kg

DRUGS (13)
  1. PREDNISONE. [Concomitant]
     Active Substance: PREDNISONE
     Dosage: 25 MILLIGRAM 5 YEARS AGO
  2. CERTOLIZUMAB PEGOL RA [Suspect]
     Active Substance: CERTOLIZUMAB PEGOL
     Indication: PSORIATIC ARTHROPATHY
     Dosage: 400 MILLIGRAM, EV 30 DAYS
     Route: 058
     Dates: start: 20201212, end: 20210209
  3. METHOTREXATE. [Concomitant]
     Active Substance: METHOTREXATE
     Indication: PRODUCT USED FOR UNKNOWN INDICATION
     Dosage: UNK
  4. CILOSTAZOL. [Concomitant]
     Active Substance: CILOSTAZOL
     Dosage: 50 MILLIGRAM, ONCE DAILY (QD) 6 YEARS AGO
     Route: 048
  5. AMLODIPINO [AMLODIPINE] [Concomitant]
     Active Substance: AMLODIPINE BESYLATE
     Indication: HYPERTENSION
     Dosage: 5 MILLIGRAM, ONCE DAILY (QD)
     Route: 048
  6. ATENOLOL. [Concomitant]
     Active Substance: ATENOLOL
     Indication: HYPERTENSION
     Dosage: 50 MILLIGRAM, ONCE DAILY (QD) 20 YEARS AGO
     Route: 048
  7. LOSARTAN. [Concomitant]
     Active Substance: LOSARTAN
     Indication: HYPERTENSION
     Dosage: 50 MILLIGRAM, ONCE DAILY (QD) 10 YEARS AGO
     Route: 048
  8. DIPYRONE [Concomitant]
     Active Substance: DIPYRONE
     Indication: PAIN
     Dosage: 500 MILLIGRAM 5 YEARS AGO
     Route: 048
  9. CERTOLIZUMAB PEGOL RA [Suspect]
     Active Substance: CERTOLIZUMAB PEGOL
     Dosage: 400 MILLIGRAM
     Route: 058
     Dates: start: 2021, end: 202103
  10. HYDROCHLOROTHIAZIDE. [Concomitant]
     Active Substance: HYDROCHLOROTHIAZIDE
     Indication: HYPERTENSION
     Dosage: 5 MILLIGRAM, ONCE DAILY (QD) 20 YEARS AGO
     Route: 048
  11. CILOSTAZOL. [Concomitant]
     Active Substance: CILOSTAZOL
     Indication: CEREBROVASCULAR ACCIDENT PROPHYLAXIS
     Dosage: 2 DOSAGE FORM, ONCE DAILY (QD)
     Route: 048
  12. PREDNISONE. [Concomitant]
     Active Substance: PREDNISONE
     Indication: PSORIATIC ARTHROPATHY
     Dosage: 10 MILLIGRAM, ONCE DAILY (QD)
     Route: 048
  13. VASOGARD [Concomitant]
     Active Substance: CILOSTAZOL
     Indication: CEREBROVASCULAR ACCIDENT

REACTIONS (14)
  - Pain [Recovering/Resolving]
  - Psoriasis [Not Recovered/Not Resolved]
  - Fall [Recovering/Resolving]
  - Illness [Recovering/Resolving]
  - Feeling cold [Recovering/Resolving]
  - Product availability issue [Unknown]
  - Swelling [Recovering/Resolving]
  - Cerebrovascular accident [Recovered/Resolved]
  - Paralysis [Not Recovered/Not Resolved]
  - Furuncle [Not Recovered/Not Resolved]
  - Therapy interrupted [Unknown]
  - Rash vesicular [Recovering/Resolving]
  - Movement disorder [Not Recovered/Not Resolved]
  - Blood pressure increased [Unknown]

NARRATIVE: CASE EVENT DATE: 20210109
